FAERS Safety Report 8535544-4 (Version None)
Quarter: 2012Q3

REPORT INFORMATION
  Report Type: 
  Country: None (occurrence: None)
  Receive Date: 20120717
  Receipt Date: 20120717
  Transmission Date: 20120928
  Serious: Yes (Hospitalization)
  Sender: FDA-Public Use
  Company Number: None

PATIENT
  Sex: Female
  Weight: 44.2 kg

DRUGS (2)
  1. PACLITAXEL [Suspect]
     Dosage: 190 MG
     Dates: end: 20120710
  2. TOPOTECAN [Suspect]
     Dosage: 2.4 MG
     Dates: end: 20120712

REACTIONS (4)
  - URINARY RETENTION [None]
  - URINARY TRACT INFECTION [None]
  - DEVICE LEAKAGE [None]
  - ANAEMIA [None]
